FAERS Safety Report 20741921 (Version 1)
Quarter: 2022Q2

REPORT INFORMATION
  Report Type: Spontaneous
  Country: HR (occurrence: HR)
  Receive Date: 20220423
  Receipt Date: 20220423
  Transmission Date: 20220720
  Serious: Yes (Other)
  Sender: FDA-Public Use
  Company Number: None

PATIENT
  Sex: Female

DRUGS (3)
  1. OXAZEPAM [Suspect]
     Active Substance: OXAZEPAM
     Dosage: 1 DF = 1 TABLET,FREQUENCY TIME 1 DAYS,DURATION 1 DAYS, UNIT DOSE 30DF
     Route: 048
     Dates: start: 20220228, end: 20220228
  2. ALPRAZOLAM [Suspect]
     Active Substance: ALPRAZOLAM
     Dosage: 1 DF = 1 TABLET,FREQUENCY TIME 1 DAYS,DURATION 1 DAYS,ADR IS ADEQUATELY LABELLED: YES, UNIT DOSE 10D
     Route: 048
     Dates: start: 20220228, end: 20220228
  3. LACIDIPINE [Suspect]
     Active Substance: LACIDIPINE
     Dosage: 1 DF = 1 TABLET,FREQUENCY TIME 1 DAYS,DURATION 1 DAYS, UNIT DOSE 5 DF,ADR IS ADEQUATELY LABELLED: NO
     Route: 048
     Dates: start: 20220228, end: 20220228

REACTIONS (3)
  - Suicide attempt [Unknown]
  - Somnolence [Unknown]
  - Intentional overdose [Unknown]

NARRATIVE: CASE EVENT DATE: 20220228
